FAERS Safety Report 24877194 (Version 1)
Quarter: 2025Q1

REPORT INFORMATION
  Report Type: Spontaneous
  Country: ES (occurrence: ES)
  Receive Date: 20250123
  Receipt Date: 20250123
  Transmission Date: 20250409
  Serious: Yes (Hospitalization)
  Sender: JOHNSON AND JOHNSON
  Company Number: None

PATIENT
  Age: 73 Year
  Sex: Male

DRUGS (17)
  1. AMIVANTAMAB [Suspect]
     Active Substance: AMIVANTAMAB
     Indication: Lung carcinoma cell type unspecified stage IV
     Route: 042
     Dates: start: 20241217
  2. NYSTATIN [Concomitant]
     Active Substance: NYSTATIN
     Indication: Product used for unknown indication
     Dates: start: 20241226
  3. MATRIX ARISTO FENTANYL 50 MICROGRAMS/HOUR TRANSDERMAL PATCH EFG, 5 pat [Concomitant]
     Indication: Product used for unknown indication
     Dates: start: 20241212
  4. Ondansetron 8 mg 15 tablets [Concomitant]
     Indication: Product used for unknown indication
     Dates: start: 20241211
  5. FENTANYL AUROVITAS SPAIN 25 micrograms/H TRANSDERMAL PATCHES EFG, 5 pa [Concomitant]
     Indication: Product used for unknown indication
     Dates: start: 20241203
  6. MOVENTIG 25 MG FILM-COATED TABLETS, 30 tablets [Concomitant]
     Indication: Product used for unknown indication
     Dates: start: 20241203
  7. Metoclopramide 10 mg 60 tablets [Concomitant]
     Indication: Product used for unknown indication
     Dates: start: 20241203
  8. DACORTIN 30 mg TABLETS, 30 tablets [Concomitant]
     Indication: Product used for unknown indication
     Dates: start: 20241202
  9. SEVREDOL 10 mg FILM-COATED TABLETS, 12 tablets [Concomitant]
     Indication: Product used for unknown indication
     Dates: start: 20241122
  10. CASENLAX 10 G ORAL SOLUTION IN SAMPLE, 20 sachets [Concomitant]
     Indication: Product used for unknown indication
     Dates: start: 20241122
  11. FUROSEMIDE [Concomitant]
     Active Substance: FUROSEMIDE
     Indication: Product used for unknown indication
     Dates: start: 20241122
  12. TRIXEO AEROSPHERE 5 micrograms/7.2 micrograms/160 micrograms SUSPENSIO [Concomitant]
     Indication: Product used for unknown indication
     Dates: start: 20240424
  13. Trazodone 100 mg 30 tablets [Concomitant]
     Indication: Product used for unknown indication
     Dates: start: 20231207
  14. AVAMYS 27.5 mcg/NASAL SUSPENSION SPRAY, 1 bottle of 120 sprays [Concomitant]
     Indication: Product used for unknown indication
     Dates: start: 20230928
  15. ACFOL 5 mg TABLETS, 28 tablets [Concomitant]
     Indication: Product used for unknown indication
     Route: 048
     Dates: start: 20220503
  16. Omeprazole 20 mg 28 capsules [Concomitant]
     Indication: Product used for unknown indication
     Route: 048
     Dates: start: 20220111
  17. DUODART 0.5 MG/0.4 MG HARD CAPSULES, 30 capsules [Concomitant]
     Indication: Product used for unknown indication
     Route: 048
     Dates: start: 20210713

REACTIONS (1)
  - Atrial fibrillation [Recovered/Resolved]

NARRATIVE: CASE EVENT DATE: 20250102
